FAERS Safety Report 12608867 (Version 1)
Quarter: 2016Q3

REPORT INFORMATION
  Report Type: Spontaneous
  Country: BR (occurrence: BR)
  Receive Date: 20160730
  Receipt Date: 20160730
  Transmission Date: 20161109
  Serious: Yes (Other)
  Sender: FDA-Public Use
  Company Number: BR-AMGEN-BRASP2016097484

PATIENT
  Age: 50 Year
  Sex: Female

DRUGS (1)
  1. XGEVA [Suspect]
     Active Substance: DENOSUMAB
     Indication: PARATHYROID TUMOUR
     Route: 065

REACTIONS (6)
  - Drug resistance [Unknown]
  - Blood parathyroid hormone increased [Unknown]
  - Metastases to pleura [Unknown]
  - Hypercalcaemia [Unknown]
  - Metastases to the mediastinum [Unknown]
  - Pancreatitis acute [Unknown]

NARRATIVE: CASE EVENT DATE: 201212
